FAERS Safety Report 4305031-8 (Version None)
Quarter: 2004Q1

REPORT INFORMATION
  Report Type: 
  Country: None (occurrence: None)
  Receive Date: 20040225
  Receipt Date: 20040225
  Transmission Date: 20041129
  Serious: Yes (Hospitalization)
  Sender: FDA-Public Use
  Company Number: None

PATIENT
  Sex: Male

DRUGS (7)
  1. GLYBURIDE [Suspect]
     Indication: DIABETES MELLITUS
     Dosage: 10 MG PO BID
     Route: 048
  2. LANSOPRAZOLE [Concomitant]
  3. TAMSULOSIN [Concomitant]
  4. EFAVIRENZ [Concomitant]
  5. DIDANOSINE [Concomitant]
  6. LAMIVUDINE; [Concomitant]
  7. PROCHLORPERAZINE [Concomitant]

REACTIONS (3)
  - COMA [None]
  - HYPOGLYCAEMIA [None]
  - VOMITING [None]
